FAERS Safety Report 4728281-5 (Version None)
Quarter: 2005Q3

REPORT INFORMATION
  Report Type: 
  Country: None (occurrence: None)
  Receive Date: 20050727
  Receipt Date: 20050715
  Transmission Date: 20060218
  Serious: Yes (Hospitalization)
  Sender: FDA-Public Use
  Company Number: 2005US000944

PATIENT
  Age: 23 Year
  Sex: Female
  Weight: 90 kg

DRUGS (9)
  1. PROGRAF [Suspect]
     Indication: IMMUNOSUPPRESSION
     Dosage: 4 MG, BID, ORAL   4.00 MG, BID, ORAL
     Route: 048
     Dates: start: 20010412
  2. PROGRAF [Suspect]
     Indication: RENAL TRANSPLANT
     Dosage: 4 MG, BID, ORAL   4.00 MG, BID, ORAL
     Route: 048
     Dates: start: 20010412
  3. PROGRAF [Suspect]
     Indication: IMMUNOSUPPRESSION
     Dosage: 4 MG, BID, ORAL   4.00 MG, BID, ORAL
     Route: 048
     Dates: start: 20041221
  4. PROGRAF [Suspect]
     Indication: RENAL TRANSPLANT
     Dosage: 4 MG, BID, ORAL   4.00 MG, BID, ORAL
     Route: 048
     Dates: start: 20041221
  5. PREDNISONE [Concomitant]
  6. LIPITOR [Concomitant]
  7. METOPROLOL [Concomitant]
  8. LISINOPRIL [Concomitant]
  9. BIRTH CONTROL PILLS [Concomitant]

REACTIONS (1)
  - PYELONEPHRITIS [None]
